FAERS Safety Report 20596461 (Version 1)
Quarter: 2022Q1

REPORT INFORMATION
  Report Type: Spontaneous
  Country: FR (occurrence: FR)
  Receive Date: 20220315
  Receipt Date: 20220315
  Transmission Date: 20220424
  Serious: Yes (Hospitalization)
  Sender: FDA-Public Use
  Company Number: FR-VERTEX PHARMACEUTICALS-2022-003995

PATIENT
  Age: 14 Year
  Sex: Female

DRUGS (13)
  1. ELEXACAFTOR\IVACAFTOR\TEZACAFTOR [Suspect]
     Active Substance: ELEXACAFTOR\IVACAFTOR\TEZACAFTOR
     Indication: Cystic fibrosis
     Dosage: UNK FREQ
     Route: 048
     Dates: start: 20210920, end: 20210928
  2. ELEXACAFTOR\IVACAFTOR\TEZACAFTOR [Suspect]
     Active Substance: ELEXACAFTOR\IVACAFTOR\TEZACAFTOR
     Dosage: REDUCED DOSE;ONCE DAILY
     Route: 048
     Dates: start: 20210929, end: 20210930
  3. ELEXACAFTOR\IVACAFTOR\TEZACAFTOR [Suspect]
     Active Substance: ELEXACAFTOR\IVACAFTOR\TEZACAFTOR
     Dosage: REDUCED DOSE;2 TABLET AT 1/10 OF DOSE
     Route: 048
     Dates: start: 20220114, end: 20220121
  4. ELEXACAFTOR\IVACAFTOR\TEZACAFTOR [Suspect]
     Active Substance: ELEXACAFTOR\IVACAFTOR\TEZACAFTOR
     Dosage: REDUCED DOSE; 2 TABLET AT 1/2 DOSE
     Route: 048
     Dates: start: 20220121, end: 20220121
  5. EUROBIOL [PANCREAS EXTRACT] [Concomitant]
     Dosage: EUROBIOL 40000 TDS+ EUROBIOL 25000 QDS
  6. VIMPAT [Concomitant]
     Active Substance: LACOSAMIDE
     Dosage: UNK
     Dates: start: 2019
  7. LAMICTAL [Concomitant]
     Active Substance: LAMOTRIGINE
     Dosage: UNK
     Dates: start: 2019
  8. RETINOL [Concomitant]
     Active Substance: RETINOL
  9. CHOLECALCIFEROL [Concomitant]
     Active Substance: CHOLECALCIFEROL
  10. POLYETHYLENE GLYCOL 4000 [Concomitant]
     Active Substance: POLYETHYLENE GLYCOL 4000
  11. URSODIOL [Concomitant]
     Active Substance: URSODIOL
  12. ALDACTONE [Concomitant]
     Active Substance: SPIRONOLACTONE
  13. .ALPHA.-TOCOPHEROL ACETATE, D- [Concomitant]
     Active Substance: .ALPHA.-TOCOPHEROL ACETATE, D-

REACTIONS (5)
  - Rash [Unknown]
  - Rash pruritic [Unknown]
  - Pyrexia [Unknown]
  - Oropharyngeal pain [Unknown]
  - Cough [Unknown]

NARRATIVE: CASE EVENT DATE: 20210929
